FAERS Safety Report 10905590 (Version 14)
Quarter: 2019Q2

REPORT INFORMATION
  Report Type: Spontaneous
  Country: US (occurrence: US)
  Receive Date: 20150311
  Receipt Date: 20190529
  Transmission Date: 20190711
  Serious: Yes (Other)
  Sender: FDA-Public Use
  Company Number: US-PFIZER INC-2015082673

PATIENT
  Age: 73 Year
  Sex: Female
  Weight: 75 kg

DRUGS (15)
  1. LYRICA [Suspect]
     Active Substance: PREGABALIN
     Dosage: 150 MG, 1X/DAY (100MG AT NIGHT AND 50(MG) IN THE MORNING)
     Route: 048
  2. ACTEMRA [Concomitant]
     Active Substance: TOCILIZUMAB
     Indication: SYSTEMIC LUPUS ERYTHEMATOSUS
  3. LYRICA [Suspect]
     Active Substance: PREGABALIN
     Indication: NEUROPATHY PERIPHERAL
     Dosage: 250 MG, DAILY (50 MG IN THE MORNING AND 200 MG AT NIGHT)
     Route: 048
     Dates: start: 200508
  4. ACTEMRA [Concomitant]
     Active Substance: TOCILIZUMAB
     Indication: AUTOIMMUNE DISORDER
  5. LYRICA [Suspect]
     Active Substance: PREGABALIN
     Dosage: 200 MG, DAILY
     Route: 048
     Dates: start: 2008
  6. PLAQUENIL [Concomitant]
     Active Substance: HYDROXYCHLOROQUINE SULFATE
     Indication: ARTHROPATHY
     Dosage: 400 MG, 1X/DAY (AT BEDTIME)
  7. LYRICA [Suspect]
     Active Substance: PREGABALIN
     Indication: SCIATICA
     Dosage: 250 MG, DAILY (TAKING 50 MG IN THE MORNING AND 2X100 MG AT NIGHT)
     Route: 048
  8. LYRICA [Suspect]
     Active Substance: PREGABALIN
     Indication: NERVE BLOCK
     Dosage: 100 MG, UNK (TWO 50 MG CAPSULES TO EQUAL 100 MG)
     Route: 048
  9. LYRICA [Suspect]
     Active Substance: PREGABALIN
     Dosage: 300 MG, UNK
     Route: 048
  10. PLAQUENIL [Concomitant]
     Active Substance: HYDROXYCHLOROQUINE SULFATE
     Indication: SYSTEMIC LUPUS ERYTHEMATOSUS
  11. ACTEMRA [Concomitant]
     Active Substance: TOCILIZUMAB
     Indication: CHRONIC DISEASE
     Dosage: UNK, MONTHLY (INFUSION)
     Route: 040
     Dates: start: 201011
  12. ACTEMRA [Concomitant]
     Active Substance: TOCILIZUMAB
     Indication: RHEUMATOID ARTHRITIS
  13. LYRICA [Suspect]
     Active Substance: PREGABALIN
     Dosage: 100 MG, DAILY
     Route: 048
  14. NEXIUM [Concomitant]
     Active Substance: ESOMEPRAZOLE MAGNESIUM
     Dosage: UNK
  15. ALEVE [Concomitant]
     Active Substance: NAPROXEN SODIUM
     Indication: PAIN
     Dosage: UNK

REACTIONS (12)
  - Gait inability [Unknown]
  - Intentional product misuse [Unknown]
  - Blood glucose fluctuation [Unknown]
  - Sedation [Unknown]
  - Malaise [Unknown]
  - Weight decreased [Recovering/Resolving]
  - Movement disorder [Unknown]
  - Fall [Recovering/Resolving]
  - Fatigue [Unknown]
  - Burning sensation [Unknown]
  - Arthralgia [Not Recovered/Not Resolved]
  - Anxiety [Unknown]

NARRATIVE: CASE EVENT DATE: 20150324
